FAERS Safety Report 8813324 (Version 1)
Quarter: 2012Q4

REPORT INFORMATION
  Report Type: 
  Country: US (occurrence: US)
  Receive Date: 20120927
  Receipt Date: 20120927
  Transmission Date: 20130627
  Serious: No
  Sender: FDA-Public Use
  Company Number: US-AMGEN-USASP2012045155

PATIENT
  Age: 73 Year
  Sex: Female

DRUGS (14)
  1. PROLIA [Suspect]
     Indication: OSTEOPOROSIS POSTMENOPAUSAL
     Dosage: 60 mg, q6mo
     Dates: start: 20110809
  2. GABAPENTIN [Concomitant]
     Dosage: UNK UNK, qd
  3. NEXIUM [Concomitant]
     Dosage: 1 mg, qd
  4. XANAX [Concomitant]
     Dosage: 1 mg, qd
  5. AMBIEN [Concomitant]
     Dosage: 1 mg, qd
  6. BENTYL [Concomitant]
     Dosage: UNK UNK, qd
  7. LOTREL [Concomitant]
     Dosage: UNK UNK, qd
  8. GLUCOPHAGE [Concomitant]
     Dosage: UNK UNK, qd
  9. CALCIUM [Concomitant]
     Dosage: UNK UNK, qd
  10. LIQUID TEARS [Concomitant]
  11. POTASSIUM [Concomitant]
     Dosage: UNK UNK, qd
  12. VITAMIN D [Concomitant]
     Dosage: UNK UNK, qd
  13. CENTRUM SILVER [Concomitant]
     Dosage: UNK UNK, qd
  14. FISH OIL [Concomitant]
     Dosage: UNK UNK, qd

REACTIONS (9)
  - Abdominal discomfort [Recovering/Resolving]
  - Muscle spasms [Not Recovered/Not Resolved]
  - Paraesthesia oral [Not Recovered/Not Resolved]
  - Haemorrhoids [Recovered/Resolved]
  - Blood pressure increased [Recovered/Resolved]
  - Blood cholesterol increased [Not Recovered/Not Resolved]
  - Vein disorder [Recovered/Resolved]
  - Carpal tunnel syndrome [Not Recovered/Not Resolved]
  - Vulvovaginal discomfort [Not Recovered/Not Resolved]
